FAERS Safety Report 6979910-7 (Version None)
Quarter: 2010Q3

REPORT INFORMATION
  Report Type: 
  Country: None (occurrence: None)
  Receive Date: 20100914
  Receipt Date: 20100903
  Transmission Date: 20110219
  Serious: Yes (Hospitalization)
  Sender: FDA-Public Use
  Company Number: US-US-EMD SERONO, INC.-7016717

PATIENT
  Sex: Female

DRUGS (2)
  1. REBIF [Suspect]
     Indication: MULTIPLE SCLEROSIS
     Dates: start: 20060101, end: 20060101
  2. REBIF [Suspect]
     Route: 058
     Dates: start: 20081117, end: 20100401

REACTIONS (2)
  - ASTHENIA [None]
  - CENTRAL NERVOUS SYSTEM LESION [None]
